FAERS Safety Report 18343304 (Version 3)
Quarter: 2021Q4

REPORT INFORMATION
  Report Type: Report from Study
  Country: IL (occurrence: IL)
  Receive Date: 20201005
  Receipt Date: 20211115
  Transmission Date: 20220303
  Serious: Yes (Hospitalization)
  Sender: FDA-Public Use
  Company Number: None

PATIENT

DRUGS (2)
  1. ALPELISIB [Suspect]
     Active Substance: ALPELISIB
     Indication: Breast cancer
     Dosage: 150 MG, QD
     Route: 065
  2. ALPELISIB [Suspect]
     Active Substance: ALPELISIB
     Dosage: UNK
     Route: 065

REACTIONS (1)
  - Hepatic function abnormal [Unknown]
